FAERS Safety Report 7425383-X (Version None)
Quarter: 2011Q2

REPORT INFORMATION
  Report Type: 
  Country: None (occurrence: None)
  Receive Date: 20110420
  Receipt Date: 20110411
  Transmission Date: 20111010
  Serious: Yes (Hospitalization)
  Sender: FDA-Public Use
  Company Number: BE-ELI_LILLY_AND_COMPANY-BE201010006790

PATIENT
  Sex: Female

DRUGS (5)
  1. ZYPADHERA [Suspect]
     Dosage: 210 MG, UNK
     Route: 030
     Dates: start: 20101018, end: 20101018
  2. DOCTRAZODONE [Concomitant]
     Indication: INSOMNIA
     Dosage: 100 MG, UNK
     Route: 048
     Dates: start: 20101015, end: 20101116
  3. RIVOTRIL [Concomitant]
     Indication: AGITATION
     Dosage: 1 MG, UNK
     Route: 048
     Dates: start: 20101005, end: 20101019
  4. ZYPREXA [Concomitant]
     Dosage: 10 MG, UNK
     Route: 048
     Dates: end: 20101007
  5. CYMBALTA [Concomitant]
     Indication: DEPRESSION
     Dosage: 60 MG, UNK
     Route: 048
     Dates: start: 20100907, end: 20101105

REACTIONS (11)
  - RESTLESSNESS [None]
  - DIZZINESS [None]
  - ANXIETY [None]
  - SEDATION [None]
  - DYSARTHRIA [None]
  - CONSTRICTED AFFECT [None]
  - FATIGUE [None]
  - ATAXIA [None]
  - SOMNOLENCE [None]
  - BLOOD PRESSURE DECREASED [None]
  - FEELING ABNORMAL [None]
